FAERS Safety Report 5612994-7 (Version None)
Quarter: 2008Q1

REPORT INFORMATION
  Report Type: 
  Country: None (occurrence: None)
  Receive Date: 20080204
  Receipt Date: 20080122
  Transmission Date: 20080703
  Serious: Yes (Other)
  Sender: FDA-Public Use
  Company Number: GB-RANBAXY-2008RR-12751

PATIENT

DRUGS (6)
  1. RISPERIDONE 1MG FILM-COATED TABLETS [Suspect]
     Indication: AGITATION
     Dosage: 1 MG, BID
     Route: 048
     Dates: start: 20071107, end: 20071113
  2. GAVISCON [Concomitant]
     Indication: GASTROOESOPHAGEAL REFLUX DISEASE
     Dosage: 10 ML, UNK
     Route: 048
     Dates: start: 20000101
  3. LAMOTRIGINE 50 MG TABLETS [Concomitant]
     Indication: EPILEPSY
     Dosage: 250 MG, BID
     Route: 048
     Dates: start: 20000101
  4. MELATONIN [Concomitant]
     Indication: SLEEP DISORDER
     Dosage: 7 MG, UNK
     Route: 048
     Dates: start: 20020101
  5. MIDAZOLAM HCL [Concomitant]
     Indication: EPILEPSY
     Dosage: 10 MG, PRN
     Route: 048
     Dates: start: 20040101
  6. ZONISAMIDE [Concomitant]
     Indication: EPILEPSY
     Dosage: 75 MG, BID
     Route: 048
     Dates: start: 20070101

REACTIONS (4)
  - DROOLING [None]
  - THIRST [None]
  - TREMOR [None]
  - VOMITING [None]
